FAERS Safety Report 18074269 (Version 2)
Quarter: 2020Q3

REPORT INFORMATION
  Report Type: Spontaneous
  Country: KR (occurrence: KR)
  Receive Date: 20200727
  Receipt Date: 20200803
  Transmission Date: 20201103
  Serious: Yes (Death)
  Sender: FDA-Public Use
  Company Number: KR-PFIZER INC-2020284122

PATIENT
  Age: 52 Year
  Sex: Female

DRUGS (5)
  1. AZEPTIN [AZELASTINE HYDROCHLORIDE] [Concomitant]
     Dosage: 1 MG, AS NEEDED
     Route: 048
     Dates: start: 20190507
  2. IBRANCE [Suspect]
     Active Substance: PALBOCICLIB
     Indication: BREAST CANCER
     Dosage: 125 MG, CYCLIC (1X/DAY, 3 WEEKS ADMINISTRATION AND 1 WEEK WITHDRAWAL PERIOD)
     Route: 048
     Dates: start: 20190223
  3. IBRANCE [Suspect]
     Active Substance: PALBOCICLIB
     Dosage: 125 MG, CYCLIC (1X/DAY, 3 WEEKS ADMINISTRATION AND 1 WEEK WITHDRAWAL PERIOD)
     Route: 048
     Dates: start: 20190507
  4. IBRANCE [Suspect]
     Active Substance: PALBOCICLIB
     Dosage: 125 MG, CYCLIC (1X/DAY, 3 WEEKS ADMINISTRATION AND 1 WEEK WITHDRAWAL PERIOD)
     Route: 048
     Dates: start: 20190403
  5. AZEPTIN [AZELASTINE HYDROCHLORIDE] [Concomitant]
     Dosage: 1 MG, AS NEEDED
     Route: 048
     Dates: start: 20190403

REACTIONS (1)
  - Death [Fatal]
